FAERS Safety Report 5490481-7 (Version None)
Quarter: 2007Q4

REPORT INFORMATION
  Report Type: 
  Country: None (occurrence: None)
  Receive Date: 20071017
  Receipt Date: 20071017
  Transmission Date: 20080405
  Serious: Yes (Hospitalization)
  Sender: FDA-Public Use
  Company Number: None

PATIENT
  Age: 57 Year
  Sex: Male
  Weight: 87.9978 kg

DRUGS (17)
  1. BACTRIM [Suspect]
     Indication: SINUSITIS
     Dosage: DS 1 TAB TWICE DAILY PO
     Route: 048
     Dates: start: 20070917, end: 20070921
  2. BISACODYL [Concomitant]
  3. CAPSAICIN [Concomitant]
  4. FLUOXETINE [Concomitant]
  5. LUBRICATING OPTHALMIC OINTMENT [Concomitant]
  6. REFRESH PLUS [Concomitant]
  7. DOXAZOSIN MESYLATE [Concomitant]
  8. FLUNISOLIDE [Concomitant]
  9. SODIUM FLORIDE [Concomitant]
  10. OXYBUTYNIN CHLORIDE [Concomitant]
  11. VANICREAM TOPICAL CREAM [Concomitant]
  12. NIFEDIPINE [Concomitant]
  13. SENOSIDES [Concomitant]
  14. ACETAMINOPHEN [Concomitant]
  15. IBUPROFEN [Concomitant]
  16. SODIUM CHLORIDE [Concomitant]
  17. OXYMETAZOLINE HCL [Concomitant]

REACTIONS (2)
  - SWOLLEN TONGUE [None]
  - TONGUE HAEMORRHAGE [None]
